FAERS Safety Report 4738615-3 (Version None)
Quarter: 2005Q3

REPORT INFORMATION
  Report Type: 
  Country: None (occurrence: None)
  Receive Date: 20050801
  Receipt Date: 20050722
  Transmission Date: 20060218
  Serious: Yes (Other)
  Sender: FDA-Public Use
  Company Number: 200509393

PATIENT
  Age: 19 Year
  Sex: Female

DRUGS (3)
  1. ALBUMINAR-5 [Suspect]
     Indication: PLASMAPHERESIS
  2. ACE INHIBITOR [Concomitant]
  3. ANTIHYPERTENSIVE AGENTS [Concomitant]

REACTIONS (7)
  - ABDOMINAL PAIN [None]
  - DIARRHOEA [None]
  - DRUG INTERACTION [None]
  - HYPERTENSION [None]
  - NAUSEA [None]
  - PROCEDURAL COMPLICATION [None]
  - VOMITING [None]
